FAERS Safety Report 20369046 (Version 2)
Quarter: 2022Q1

REPORT INFORMATION
  Report Type: Report from Study
  Country: GB (occurrence: GB)
  Receive Date: 20220124
  Receipt Date: 20220321
  Transmission Date: 20220423
  Serious: Yes (Other)
  Sender: FDA-Public Use
  Company Number: GB-NOVARTISPH-NVSC2022GB008585

PATIENT
  Sex: Female

DRUGS (1)
  1. MAYZENT [Suspect]
     Active Substance: SIPONIMOD
     Indication: Multiple sclerosis
     Dosage: 2 MG, QD
     Route: 048
     Dates: start: 20220110

REACTIONS (5)
  - Hemianopia [Recovering/Resolving]
  - Blindness [Unknown]
  - Eye pain [Unknown]
  - Eye swelling [Unknown]
  - Feeling abnormal [Unknown]
